FAERS Safety Report 16732836 (Version 1)
Quarter: 2019Q3

REPORT INFORMATION
  Report Type: Spontaneous
  Country: US (occurrence: US)
  Receive Date: 20190823
  Receipt Date: 20190823
  Transmission Date: 20191005
  Serious: No
  Sender: FDA-Public Use
  Company Number: US-GLAXOSMITHKLINE-US2019149990

PATIENT
  Age: 56 Year
  Sex: Female

DRUGS (2)
  1. LAMISIL AT CONTINUOUS SPRAY [Suspect]
     Active Substance: TERBINAFINE HYDROCHLORIDE
     Indication: SKIN ODOUR ABNORMAL
     Dosage: UNK, QD
     Route: 061
  2. LAMISL AF DEFENSE [Suspect]
     Active Substance: TOLNAFTATE
     Indication: SKIN ODOUR ABNORMAL
     Dosage: UNK

REACTIONS (4)
  - Seborrhoea [Unknown]
  - Drug effective for unapproved indication [Not Recovered/Not Resolved]
  - Product use in unapproved indication [Not Recovered/Not Resolved]
  - Drug ineffective for unapproved indication [Unknown]
